FAERS Safety Report 24343608 (Version 1)
Quarter: 2024Q3

REPORT INFORMATION
  Report Type: Spontaneous
  Country: GB (occurrence: GB)
  Receive Date: 20240920
  Receipt Date: 20240920
  Transmission Date: 20241017
  Serious: Yes (Disabling)
  Sender: RANBAXY
  Company Number: GB-MHRA-TPP24577951C6455606YC1725383103127

PATIENT
  Age: 53 Year
  Sex: Female
  Weight: 80 kg

DRUGS (13)
  1. CODEINE [Suspect]
     Active Substance: CODEINE
     Indication: Ill-defined disorder
     Route: 048
  2. AMDINOCILLIN PIVOXIL [Concomitant]
     Active Substance: AMDINOCILLIN PIVOXIL
     Indication: Ill-defined disorder
     Dosage: TAKE TWO TABLETS AS A SINGLE DOSE IMMEDIATELY, ...
     Route: 065
     Dates: start: 20240610, end: 20240617
  3. DICLOFENAC SODIUM [Concomitant]
     Active Substance: DICLOFENAC\DICLOFENAC SODIUM
     Indication: Ill-defined disorder
     Dosage: INSERT ONE AT NIGHT ONLY WHEN REQUIRED FOR SEVE...
     Route: 065
     Dates: start: 20240704, end: 20240706
  4. MACROGOL COMPOUND [Concomitant]
     Indication: Ill-defined disorder
     Dosage: TWO SACHETS DAILY AS REQUIRED
     Route: 065
     Dates: start: 20240712, end: 20240726
  5. DIAZEPAM [Concomitant]
     Active Substance: DIAZEPAM
     Indication: Ill-defined disorder
     Dosage: TAKE ONE UP TO THREE TIMES PER DAY AS NEEDED
     Route: 065
     Dates: start: 20240830
  6. BECLOMETHASONE DIPROPIONATE [Concomitant]
     Active Substance: BECLOMETHASONE DIPROPIONATE
     Indication: Ill-defined disorder
     Dosage: INHALE TWO PUFFS TWICE DAILY TO HELP PREVENT BR...
     Route: 065
     Dates: start: 20240213
  7. HYDROXYCHLOROQUINE SULFATE [Concomitant]
     Active Substance: HYDROXYCHLOROQUINE SULFATE
     Indication: Ill-defined disorder
     Dosage: 1 TABLET DAILY
     Route: 065
     Dates: start: 20240213
  8. NAPROXEN [Concomitant]
     Active Substance: NAPROXEN
     Indication: Ill-defined disorder
     Dosage: ONE TABLET TWICE A DAY WITH MEALS
     Route: 065
     Dates: start: 20240213
  9. OMEPRAZOLE [Concomitant]
     Active Substance: OMEPRAZOLE
     Indication: Ill-defined disorder
     Dosage: TAKE ONE CAPSULE EACH DAY TO HELP PREVENT INDIG...
     Route: 065
     Dates: start: 20240213
  10. ALBUTEROL [Concomitant]
     Active Substance: ALBUTEROL
     Indication: Ill-defined disorder
     Dosage: INHALE ONE TO TWO PUFFS UP TO FOUR TIMES A DAY ...
     Route: 065
     Dates: start: 20240213
  11. CARBIMAZOLE [Concomitant]
     Active Substance: CARBIMAZOLE
     Indication: Ill-defined disorder
     Dosage: FOR OVERACTIVE THYROID, ONE TABLET DAILY
     Route: 065
     Dates: start: 20240531
  12. SERTRALINE [Concomitant]
     Active Substance: SERTRALINE HYDROCHLORIDE
     Indication: Ill-defined disorder
     Dosage: TAKE ONE TABLET DAILY FOR ANXIETY/DEPRESSION
     Route: 065
     Dates: start: 20240611
  13. PROPRANOLOL [Concomitant]
     Active Substance: PROPRANOLOL HYDROCHLORIDE
     Indication: Ill-defined disorder
     Dosage: TAKE ONE 3 TIMES/DAY
     Route: 065
     Dates: start: 20240704

REACTIONS (1)
  - Abdominal discomfort [Recovered/Resolved]
